FAERS Safety Report 4614294-0 (Version None)
Quarter: 2005Q1

REPORT INFORMATION
  Report Type: 
  Country: None (occurrence: None)
  Receive Date: 20050315
  Receipt Date: 20050301
  Transmission Date: 20050727
  Serious: Yes (Hospitalization, Other)
  Sender: FDA-Public Use
  Company Number: USA050187429

PATIENT
  Age: 68 Year
  Sex: Female
  Weight: 57 kg

DRUGS (1)
  1. EVISTA [Suspect]
     Dosage: 60 MG DAY
     Dates: start: 20011101, end: 20041101

REACTIONS (1)
  - ENDOMETRIAL CANCER STAGE II [None]
